FAERS Safety Report 4541065-6 (Version None)
Quarter: 2004Q4

REPORT INFORMATION
  Report Type: 
  Country: None (occurrence: None)
  Receive Date: 20041228
  Receipt Date: 20041207
  Transmission Date: 20050328
  Serious: Yes (Other)
  Sender: FDA-Public Use
  Company Number: EWC041241837

PATIENT
  Age: 39 Year
  Sex: Female

DRUGS (4)
  1. YENTREVE (DULOXETINE HYDROCHLORIDE) [Suspect]
     Dosage: 1 DSG FORM
     Dates: start: 20411205, end: 20040201
  2. DITROPAN [Concomitant]
  3. PANTOPRAZOLE SODIUM [Concomitant]
  4. CIPROXIN (CIPROFLOXACIN LACTATE) [Concomitant]

REACTIONS (1)
  - HYPERSENSITIVITY [None]
